FAERS Safety Report 25983511 (Version 1)
Quarter: 2025Q4

REPORT INFORMATION
  Report Type: Spontaneous
  Country: EU (occurrence: EU)
  Receive Date: 20251031
  Receipt Date: 20251031
  Transmission Date: 20260117
  Serious: Yes (Hospitalization, Other)
  Sender: RANBAXY
  Company Number: EU-SUN PHARMACEUTICAL INDUSTRIES LTD-2025R1-534273

PATIENT
  Age: 66 Year
  Sex: Male

DRUGS (6)
  1. METFORMIN [Suspect]
     Active Substance: METFORMIN HYDROCHLORIDE
     Indication: Microscopic polyangiitis
     Dosage: 1000 MILLIGRAM, TID
     Route: 065
  2. APIXABAN [Suspect]
     Active Substance: APIXABAN
     Indication: Microscopic polyangiitis
     Dosage: 2.5 MILLIGRAM, BID
     Route: 065
  3. ASPIRIN [Suspect]
     Active Substance: ASPIRIN
     Indication: Microscopic polyangiitis
     Dosage: 100 MILLIGRAM, MID
     Route: 065
  4. METOPROLOL [Suspect]
     Active Substance: METOPROLOL
     Indication: Microscopic polyangiitis
     Dosage: 100 MILLIGRAM, BID
     Route: 065
  5. FUROSEMIDE [Suspect]
     Active Substance: FUROSEMIDE
     Indication: Microscopic polyangiitis
     Dosage: 25 MILLIGRAM, BID
     Route: 065
  6. CANRENOATE POTASSIUM [Suspect]
     Active Substance: CANRENOATE POTASSIUM
     Indication: Microscopic polyangiitis
     Dosage: 50 MILLIGRAM, MID
     Route: 065

REACTIONS (1)
  - Acute coronary syndrome [Unknown]
